FAERS Safety Report 13344713 (Version 1)
Quarter: 2017Q1

REPORT INFORMATION
  Report Type: Spontaneous
  Country: US (occurrence: US)
  Receive Date: 20170317
  Receipt Date: 20170317
  Transmission Date: 20170428
  Serious: No
  Sender: FDA-Public Use
  Company Number: US-AUROBINDO-AUR-APL-2013-08112

PATIENT

DRUGS (2)
  1. SERTRALINE HCL [Suspect]
     Active Substance: SERTRALINE HYDROCHLORIDE
     Indication: PAIN
     Dosage: UNK UNK,UNK,,50MG, HALF TABLET ONLY
     Route: 048
     Dates: start: 20130921
  2. VENTOLIN [Concomitant]
     Active Substance: ALBUTEROL SULFATE
     Indication: ASTHMA
     Dosage: UNK UNK,AS NECESSARY,

REACTIONS (8)
  - Wrong technique in product usage process [Recovered/Resolved]
  - Musculoskeletal stiffness [Recovered/Resolved]
  - Anxiety [Recovered/Resolved]
  - Product substitution issue [Recovered/Resolved]
  - Product use issue [Recovered/Resolved]
  - Depression [Recovered/Resolved]
  - Feeling abnormal [Recovered/Resolved]
  - Drug ineffective [Recovered/Resolved]

NARRATIVE: CASE EVENT DATE: 20130921
